FAERS Safety Report 12662274 (Version 1)
Quarter: 2016Q3

REPORT INFORMATION
  Report Type: Report from Study
  Country: DE (occurrence: DE)
  Receive Date: 20160817
  Receipt Date: 20160817
  Transmission Date: 20161109
  Serious: Yes (Hospitalization)
  Sender: FDA-Public Use
  Company Number: DE-ABBVIE-16K-062-1698232-00

PATIENT
  Age: 51 Year
  Sex: Male

DRUGS (14)
  1. HUMIRA [Suspect]
     Active Substance: ADALIMUMAB
     Indication: RHEUMATOID ARTHRITIS
     Route: 058
     Dates: start: 200509, end: 200708
  2. MABTHERA [Concomitant]
     Active Substance: RITUXIMAB
     Dates: start: 200804, end: 200804
  3. SULFASALAZINE DELAYED-RELEASE [Concomitant]
     Active Substance: SULFASALAZINE
     Indication: RHEUMATOID ARTHRITIS
     Dates: start: 200310, end: 200512
  4. MTX [Concomitant]
     Active Substance: METHOTREXATE SODIUM
     Indication: RHEUMATOID ARTHRITIS
     Dates: start: 200701, end: 2007
  5. MABTHERA [Concomitant]
     Active Substance: RITUXIMAB
     Dates: start: 201107, end: 201107
  6. HYDROXYCHLOROQUINE [Suspect]
     Active Substance: HYDROXYCHLOROQUINE
     Dosage: 200 - 400 MG
     Route: 065
     Dates: start: 2011
  7. LEFLUNOMID [Concomitant]
     Active Substance: LEFLUNOMIDE
     Dates: start: 200606, end: 200701
  8. MABTHERA [Concomitant]
     Active Substance: RITUXIMAB
     Dates: start: 201501, end: 201501
  9. AZATHIOPRIN [Suspect]
     Active Substance: AZATHIOPRINE
     Indication: RHEUMATOID ARTHRITIS
     Dosage: 75 - 300 MG
     Route: 065
     Dates: start: 2008
  10. LEFLUNOMID [Concomitant]
     Active Substance: LEFLUNOMIDE
     Indication: RHEUMATOID ARTHRITIS
     Dates: start: 200401, end: 200512
  11. MABTHERA [Concomitant]
     Active Substance: RITUXIMAB
     Indication: RHEUMATOID ARTHRITIS
     Dates: start: 200708, end: 200708
  12. MABTHERA [Concomitant]
     Active Substance: RITUXIMAB
     Dates: start: 200901, end: 200901
  13. HYDROXYCHLOROQUINE [Suspect]
     Active Substance: HYDROXYCHLOROQUINE
     Indication: RHEUMATOID ARTHRITIS
     Route: 065
     Dates: start: 200501, end: 200512
  14. MABTHERA [Concomitant]
     Active Substance: RITUXIMAB
     Dates: start: 200911, end: 200911

REACTIONS (2)
  - Acute prerenal failure [Unknown]
  - Escherichia urinary tract infection [Recovered/Resolved]

NARRATIVE: CASE EVENT DATE: 20151114
